FAERS Safety Report 4607171-2 (Version None)
Quarter: 2005Q1

REPORT INFORMATION
  Report Type: 
  Country: None (occurrence: None)
  Receive Date: 20050311
  Receipt Date: 20050311
  Transmission Date: 20050727
  Serious: Yes (Hospitalization, Other)
  Sender: FDA-Public Use
  Company Number: None

PATIENT
  Age: 77 Year
  Sex: Female
  Weight: 45 kg

DRUGS (6)
  1. TEQUIN [Suspect]
     Dosage: 200 MG IV DAILY
     Route: 042
     Dates: start: 20041022, end: 20041024
  2. REGULAR INSULIN [Concomitant]
  3. CLEOCIN [Concomitant]
  4. PEPCID [Concomitant]
  5. LANTUS [Concomitant]
  6. VANC [Concomitant]

REACTIONS (1)
  - HYPOGLYCAEMIA [None]
